FAERS Safety Report 8047377-6 (Version None)
Quarter: 2012Q1

REPORT INFORMATION
  Report Type: 
  Country: None (occurrence: None)
  Receive Date: 20120116
  Receipt Date: 20120113
  Transmission Date: 20120608
  Serious: Yes (Life-Threatening, Hospitalization)
  Sender: FDA-Public Use
  Company Number: IT-BAYER-2012-004351

PATIENT

DRUGS (1)
  1. NEXAVAR [Suspect]
     Indication: HEPATIC NEOPLASM MALIGNANT
     Dosage: 800 MG, DAILY
     Route: 048
     Dates: start: 20080904, end: 20090916

REACTIONS (2)
  - HEPATIC ENCEPHALOPATHY [None]
  - HEPATITIS ACUTE [None]
